FAERS Safety Report 18543497 (Version 1)
Quarter: 2020Q4

REPORT INFORMATION
  Report Type: Spontaneous
  Country: CN (occurrence: CN)
  Receive Date: 20201124
  Receipt Date: 20201124
  Transmission Date: 20210114
  Serious: Yes (Disabling)
  Sender: FDA-Public Use
  Company Number: CN-BAXTER-2020BAX023466

PATIENT
  Age: 39 Year
  Sex: Male
  Weight: 78 kg

DRUGS (8)
  1. VITAMIN C [Suspect]
     Active Substance: ASCORBIC ACID
     Indication: FLUID REPLACEMENT
     Route: 041
     Dates: start: 20201024, end: 20201025
  2. SODIUM CHLORIDE. [Suspect]
     Active Substance: SODIUM CHLORIDE
     Indication: MEDICATION DILUTION
     Dosage: 0.9% NS 100ML + DEXAMETHASONE INJECTION 10MG
     Route: 041
     Dates: start: 20201024, end: 20201026
  3. MIKEBAO [MECOBALAMIN] [Suspect]
     Active Substance: METHYLCOBALAMIN
     Indication: NERVOUS SYSTEM DISORDER
     Route: 042
     Dates: start: 20201024, end: 20201029
  4. 20% MANNITOL INJECTION [Suspect]
     Active Substance: MANNITOL
     Indication: OEDEMA
     Dosage: DOSE: 50G/250ML
     Route: 041
     Dates: start: 20201024, end: 20201029
  5. VITAMIN B6 [Suspect]
     Active Substance: PYRIDOXINE HYDROCHLORIDE
     Indication: FLUID REPLACEMENT
     Route: 041
     Dates: start: 20201024, end: 20201025
  6. DEXAMETHASONE SODIUM PHOSPHATE. [Suspect]
     Active Substance: DEXAMETHASONE SODIUM PHOSPHATE
     Indication: INTERVERTEBRAL DISC PROTRUSION
     Route: 041
     Dates: start: 20201024, end: 20201026
  7. DEXAMETHASONE SODIUM PHOSPHATE. [Suspect]
     Active Substance: DEXAMETHASONE SODIUM PHOSPHATE
     Indication: STEROID THERAPY
  8. SODIUM CHLORIDE. [Suspect]
     Active Substance: SODIUM CHLORIDE
     Dosage: 0.9% NS 250ML + VITAMINC INJECTION 2G + VITAMINB6 INJECTION 0.2G
     Route: 041
     Dates: start: 20201024, end: 20201025

REACTIONS (1)
  - Hepatic enzyme increased [Unknown]

NARRATIVE: CASE EVENT DATE: 20201028
